FAERS Safety Report 7514035-3 (Version None)
Quarter: 2011Q2

REPORT INFORMATION
  Report Type: 
  Country: None (occurrence: None)
  Receive Date: 20110531
  Receipt Date: 20100211
  Transmission Date: 20111010
  Serious: No
  Sender: FDA-Public Use
  Company Number: US-BAYER-201013811NA

PATIENT
  Sex: Male

DRUGS (5)
  1. AVELOX [Suspect]
     Indication: PRODUCT USED FOR UNKNOWN INDICATION
  2. FLOMAX [Concomitant]
  3. AMITRIPTYLINE HCL [Concomitant]
  4. AVODART [Concomitant]
  5. AMBIEN [Concomitant]

REACTIONS (1)
  - DIZZINESS [None]
